FAERS Safety Report 5863937-2 (Version None)
Quarter: 2008Q3

REPORT INFORMATION
  Report Type: 
  Country: None (occurrence: None)
  Receive Date: 20080829
  Receipt Date: 20080819
  Transmission Date: 20090109
  Serious: Yes (Other)
  Sender: FDA-Public Use
  Company Number: US-JNJFOC-20080804884

PATIENT
  Sex: Female
  Weight: 52.16 kg

DRUGS (5)
  1. DURAGESIC-100 [Suspect]
     Indication: BACK PAIN
     Route: 062
  2. NORCO [Concomitant]
     Indication: BREAKTHROUGH PAIN
     Route: 065
  3. OXYCODONE HCL [Concomitant]
     Indication: BREAKTHROUGH PAIN
     Route: 065
  4. ATENOLOL [Concomitant]
     Indication: BLOOD PRESSURE
     Route: 065
  5. REMERON [Concomitant]
     Indication: DEPRESSION
     Route: 065

REACTIONS (3)
  - ANOREXIA [None]
  - BREAST CANCER [None]
  - DRUG ADMINISTERED AT INAPPROPRIATE SITE [None]
